FAERS Safety Report 9513048 (Version 1)
Quarter: 2013Q3

REPORT INFORMATION
  Report Type: Spontaneous
  Country: GB (occurrence: GB)
  Receive Date: 20130910
  Receipt Date: 20130910
  Transmission Date: 20140515
  Serious: Yes (Death)
  Sender: FDA-Public Use
  Company Number: GB-PFIZER INC-2013256842

PATIENT
  Age: 50 Year
  Sex: Male

DRUGS (6)
  1. PREGABALIN [Suspect]
  2. GABAPENTIN [Suspect]
  3. VENLAFAXINE HCL [Suspect]
  4. DIAZEPAM [Suspect]
  5. SIMVASTATIN [Suspect]
  6. AMITRIPTYLINE [Suspect]

REACTIONS (2)
  - Overdose [Fatal]
  - Toxicity to various agents [Fatal]
